FAERS Safety Report 6516165-1 (Version None)
Quarter: 2009Q4

REPORT INFORMATION
  Report Type: 
  Country: None (occurrence: None)
  Receive Date: 20091223
  Receipt Date: 20091217
  Transmission Date: 20100525
  Serious: Yes (Other)
  Sender: FDA-Public Use
  Company Number: JP-BAYER-200940099GPV

PATIENT
  Age: 31 Year
  Sex: Male

DRUGS (10)
  1. FLUDARABINE [Suspect]
     Indication: CORD BLOOD TRANSPLANT THERAPY
     Dosage: TOTAL DAILY DOSE: 25 MG/M2
     Route: 065
     Dates: start: 20080101
  2. GEMTUZUMAB OZOGAMICIN [Suspect]
     Indication: CORD BLOOD TRANSPLANT THERAPY
     Dosage: TOTAL DAILY DOSE: 3 MG/M2
     Dates: start: 20080101
  3. GEMTUZUMAB OZOGAMICIN [Suspect]
     Dosage: TOTAL DAILY DOSE: 6 MG/M2
     Dates: start: 20080101
  4. MELPHALAN [Suspect]
     Indication: CORD BLOOD TRANSPLANT THERAPY
     Dosage: TOTAL DAILY DOSE: 40 MG/M2
     Dates: start: 20080101
  5. ARA-C [Suspect]
     Indication: ACUTE MYELOID LEUKAEMIA
     Dosage: DAY -6 TO - 5
     Dates: start: 20080101, end: 20080101
  6. CYCLOSPORINE [Concomitant]
     Indication: PROPHYLAXIS AGAINST GRAFT VERSUS HOST DISEASE
     Dates: start: 20080101
  7. MYCOPHENOLATE MOFETIL [Concomitant]
     Indication: PROPHYLAXIS AGAINST GRAFT VERSUS HOST DISEASE
     Dates: start: 20080101
  8. LOW-MOLECULAR-WEIGHT HEPARIN [Concomitant]
     Indication: PROPHYLAXIS
     Dates: start: 20080101
  9. PROSTAGLANDIN E1 [Concomitant]
     Indication: PROPHYLAXIS
  10. ANTI-THROMBIN III [Concomitant]
     Indication: PROPHYLAXIS

REACTIONS (7)
  - ABDOMINAL PAIN UPPER [None]
  - COAGULOPATHY [None]
  - HYPERBILIRUBINAEMIA [None]
  - NEUTROPENIA [None]
  - THROMBOCYTOPENIA [None]
  - TRANSAMINASES INCREASED [None]
  - VENOOCCLUSIVE LIVER DISEASE [None]
